FAERS Safety Report 9263311 (Version 1)
Quarter: 2013Q2

REPORT INFORMATION
  Report Type: Report from Study
  Country: US (occurrence: US)
  Receive Date: 20130430
  Receipt Date: 20130430
  Transmission Date: 20140414
  Serious: No
  Sender: FDA-Public Use
  Company Number: US-ABBOTT-12P-163-1005869-00

PATIENT
  Age: 69 Year
  Sex: Female
  Weight: 54.93 kg

DRUGS (5)
  1. CREON [Suspect]
     Indication: PANCREATICODUODENECTOMY
     Dosage: TWO TO THREE BEFORE A MEAL
     Dates: start: 201210
  2. UNKNOWN THYROID MEDICATION [Concomitant]
     Indication: THYROID DISORDER
  3. UNKNOWN BLOOD PRESSURE MEDICATION [Concomitant]
     Indication: HYPERTENSION
  4. IRON [Concomitant]
     Indication: BLOOD IRON DECREASED
  5. VITAMIN B 12 [Concomitant]
     Indication: VITAMIN B12 DEFICIENCY

REACTIONS (2)
  - Abdominal pain [Recovered/Resolved]
  - Diarrhoea [Recovered/Resolved]
